FAERS Safety Report 8460038-4 (Version None)
Quarter: 2012Q2

REPORT INFORMATION
  Report Type: 
  Country: None (occurrence: None)
  Receive Date: 20120622
  Receipt Date: 20120620
  Transmission Date: 20120825
  Serious: Yes (Hospitalization, Other)
  Sender: FDA-Public Use
  Company Number: PHHY2012GB052779

PATIENT
  Age: 57 Year
  Sex: Female

DRUGS (3)
  1. ARCOXIA [Suspect]
     Indication: ARTHRALGIA
     Dosage: 60 MG, UNK
     Route: 048
     Dates: start: 20120524, end: 20120531
  2. WARFARIN SODIUM [Suspect]
     Dosage: 3 MG, UNK
     Route: 048
     Dates: start: 19980101
  3. SULFASALAZINE [Concomitant]
     Indication: RHEUMATOID ARTHRITIS
     Dosage: 500 MG, BID
     Route: 048

REACTIONS (2)
  - INTERNATIONAL NORMALISED RATIO INCREASED [None]
  - DRUG INTERACTION [None]
